FAERS Safety Report 24378151 (Version 2)
Quarter: 2024Q4

REPORT INFORMATION
  Report Type: Spontaneous
  Country: US (occurrence: US)
  Receive Date: 20240930
  Receipt Date: 20241118
  Transmission Date: 20250115
  Serious: Yes (Hospitalization, Other)
  Sender: BRISTOL-MYERS SQUIBB COMPANY
  Company Number: US-BRISTOL-MYERS SQUIBB COMPANY-2024-153528

PATIENT
  Age: 65 Year
  Sex: Male
  Weight: 53.98 kg

DRUGS (1)
  1. POMALYST [Suspect]
     Active Substance: POMALIDOMIDE
     Indication: Plasma cell myeloma
     Dosage: FREQ : ONCE DAILY FOR 21 DAYS AND 7 DAYS OFF
     Route: 048
     Dates: start: 20230421

REACTIONS (5)
  - Osteomyelitis [Unknown]
  - Dizziness [Unknown]
  - Cardiac failure [Unknown]
  - Fall [Unknown]
  - Troponin increased [Unknown]

NARRATIVE: CASE EVENT DATE: 20240915
